FAERS Safety Report 8817267 (Version 1)
Quarter: 2012Q4

REPORT INFORMATION
  Report Type: 
  Country: UG (occurrence: UG)
  Receive Date: 20121004
  Receipt Date: 20121004
  Transmission Date: 20130627
  Serious: Yes (Death, Hospitalization)
  Sender: FDA-Public Use
  Company Number: UG-MYLANLABS-2012S1019865

PATIENT
  Age: 35 Year
  Sex: Male

DRUGS (9)
  1. ZIDOVUDINE [Suspect]
     Indication: HIV INFECTION
     Route: 065
  2. LAMIVUDINE [Suspect]
     Indication: HIV INFECTION
     Route: 065
  3. EFAVIRENZ [Suspect]
     Indication: HIV INFECTION
     Route: 065
  4. FLUCONAZOLE [Suspect]
     Indication: MENINGITIS CRYPTOCOCCAL
     Dosage: 400 mg/d for 8w; then 200mg daily
     Route: 065
  5. FLUCONAZOLE [Suspect]
     Indication: MENINGITIS CRYPTOCOCCAL
     Dosage: 200mg/d
     Route: 065
  6. PREDNISOLONE [Suspect]
     Indication: IMMUNE RECONSTITUTION SYNDROME
     Dosage: 60 mg/d for 7d, tapered by 10mg/w over 6w
     Route: 065
  7. PREDNISOLONE [Suspect]
     Indication: IMMUNE RECONSTITUTION SYNDROME
     Dosage: tapered from 60 mg/d over 6w by 10 mg/w
     Route: 065
  8. AMPHOTERICIN B [Concomitant]
     Indication: MENINGITIS CRYPTOCOCCAL
     Dosage: 0.7 mg/kg/d
     Route: 065
  9. COTRIMOXAZOLE [Concomitant]
     Indication: PROPHYLAXIS
     Dosage: daily
     Route: 065

REACTIONS (3)
  - Immune reconstitution inflammatory syndrome [Not Recovered/Not Resolved]
  - Meningitis cryptococcal [Fatal]
  - Drug resistance [Not Recovered/Not Resolved]
